FAERS Safety Report 14100371 (Version 13)
Quarter: 2018Q2

REPORT INFORMATION
  Report Type: Report from Study
  Country: US (occurrence: US)
  Receive Date: 20171017
  Receipt Date: 20180608
  Transmission Date: 20180711
  Serious: Yes (Hospitalization)
  Sender: FDA-Public Use
  Company Number: US-ACTELION-A-NJ2017-159078

PATIENT
  Age: 67 Year
  Sex: Female
  Weight: 68.27 kg

DRUGS (7)
  1. METFORMIN [Concomitant]
     Active Substance: METFORMIN HYDROCHLORIDE
  2. PREDNISONE. [Concomitant]
     Active Substance: PREDNISONE
  3. VELETRI [Suspect]
     Active Substance: EPOPROSTENOL
     Indication: PULMONARY ARTERIAL HYPERTENSION
     Dosage: 26 NG/KG, PER MIN
     Route: 042
  4. OXYGEN. [Concomitant]
     Active Substance: OXYGEN
     Dosage: 6-10 L
  5. OXYGEN. [Concomitant]
     Active Substance: OXYGEN
     Dosage: 3L
  6. VELETRI [Suspect]
     Active Substance: EPOPROSTENOL
     Dosage: 22 NG/KG, PER MIN
     Route: 042
  7. OPSUMIT [Suspect]
     Active Substance: MACITENTAN
     Indication: PULMONARY ARTERIAL HYPERTENSION
     Dosage: 10 MG, QD
     Route: 048
     Dates: start: 20170123

REACTIONS (31)
  - Dizziness [Unknown]
  - Diarrhoea [Unknown]
  - Eye pain [Unknown]
  - Loss of personal independence in daily activities [Unknown]
  - Pneumonia [Unknown]
  - Fluid overload [Recovered/Resolved]
  - Dyspnoea [Recovered/Resolved with Sequelae]
  - Anaemia [Not Recovered/Not Resolved]
  - Pain in jaw [Unknown]
  - Respiratory failure [Recovered/Resolved with Sequelae]
  - Oxygen consumption increased [Recovered/Resolved]
  - Autoimmune disorder [Unknown]
  - Organising pneumonia [Recovered/Resolved with Sequelae]
  - Hypoxia [Recovered/Resolved with Sequelae]
  - Oxygen saturation decreased [Recovered/Resolved with Sequelae]
  - Lung infiltration [Recovered/Resolved]
  - Hyperglycaemia [Unknown]
  - Eye haemorrhage [Unknown]
  - Pyrexia [Recovered/Resolved with Sequelae]
  - Lung consolidation [Recovered/Resolved]
  - Malaise [Recovered/Resolved with Sequelae]
  - Oedema peripheral [Recovered/Resolved with Sequelae]
  - Palpitations [Unknown]
  - Pulmonary oedema [Recovered/Resolved]
  - Cough [Recovered/Resolved with Sequelae]
  - Fatigue [Recovered/Resolved with Sequelae]
  - Weight increased [Recovered/Resolved with Sequelae]
  - Nasal congestion [Recovered/Resolved with Sequelae]
  - Pain in extremity [Unknown]
  - Chest discomfort [Unknown]
  - Dyspnoea exertional [Unknown]

NARRATIVE: CASE EVENT DATE: 2017
